FAERS Safety Report 25921050 (Version 1)
Quarter: 2025Q4

REPORT INFORMATION
  Report Type: Spontaneous
  Country: JP (occurrence: JP)
  Receive Date: 20251014
  Receipt Date: 20251014
  Transmission Date: 20260117
  Serious: Yes (Disabling)
  Sender: MERCK SHARP & DOHME LLC
  Company Number: JP-009507513-2305451

PATIENT
  Age: 73 Year
  Sex: Male

DRUGS (4)
  1. KEYTRUDA [Suspect]
     Active Substance: PEMBROLIZUMAB
     Indication: Non-small cell lung cancer stage II
     Dosage: CYCLE 1
     Dates: start: 20250730
  2. KEYTRUDA [Suspect]
     Active Substance: PEMBROLIZUMAB
     Indication: Non-small cell lung cancer stage II
     Dosage: 4 CYCLES
     Route: 041
     Dates: start: 20250214, end: 20250413
  3. CISPLATIN [Suspect]
     Active Substance: CISPLATIN
     Indication: Non-small cell lung cancer stage II
     Route: 042
     Dates: start: 202502, end: 202505
  4. PEMETREXED [Suspect]
     Active Substance: PEMETREXED
     Indication: Non-small cell lung cancer stage II
     Route: 042
     Dates: start: 202502, end: 202505

REACTIONS (2)
  - Adrenal disorder [Recovered/Resolved with Sequelae]
  - Immune-mediated renal disorder [Unknown]

NARRATIVE: CASE EVENT DATE: 20250616
